FAERS Safety Report 6311641-9 (Version None)
Quarter: 2009Q3

REPORT INFORMATION
  Report Type: 
  Country: None (occurrence: None)
  Receive Date: 20090817
  Receipt Date: 20090810
  Transmission Date: 20100115
  Serious: Yes (Hospitalization)
  Sender: FDA-Public Use
  Company Number: B0587964A

PATIENT
  Sex: Male

DRUGS (5)
  1. RYTHMOL [Suspect]
     Indication: WOLFF-PARKINSON-WHITE SYNDROME
     Route: 048
     Dates: start: 20030101
  2. PARACETAMOL [Suspect]
     Indication: DRUG USE FOR UNKNOWN INDICATION
     Dosage: 500MG SIX TIMES PER DAY
     Route: 048
     Dates: end: 20090707
  3. VASTEN [Suspect]
     Dosage: 20MG PER DAY
     Route: 048
     Dates: start: 19980101
  4. LODINE [Suspect]
     Indication: PAIN
     Dosage: 600MG PER DAY
     Route: 048
     Dates: start: 20040101, end: 20090707
  5. MAALOX [Suspect]
     Route: 048
     Dates: start: 20090630, end: 20090707

REACTIONS (3)
  - C-REACTIVE PROTEIN INCREASED [None]
  - PANCREATITIS ACUTE [None]
  - WHITE BLOOD CELL COUNT INCREASED [None]
